FAERS Safety Report 21365698 (Version 1)
Quarter: 2022Q3

REPORT INFORMATION
  Report Type: Spontaneous
  Country: FR (occurrence: FR)
  Receive Date: 20220922
  Receipt Date: 20220922
  Transmission Date: 20221027
  Serious: Yes (Congenital Anomaly)
  Sender: FDA-Public Use
  Company Number: None

PATIENT

DRUGS (6)
  1. FLUOXETINE [Suspect]
     Active Substance: FLUOXETINE HYDROCHLORIDE
     Indication: Depression
     Dosage: UNK UNK, UNKNOWN
     Route: 064
  2. FLUOXETINE [Suspect]
     Active Substance: FLUOXETINE HYDROCHLORIDE
     Indication: Depression
     Dosage: UNK UNK, UNKNOWN
     Route: 064
  3. MIANSERIN HYDROCHLORIDE [Suspect]
     Active Substance: MIANSERIN HYDROCHLORIDE
     Indication: Depression
     Dosage: UNK UNK, UNKNOWN
     Route: 064
  4. MIANSERIN HYDROCHLORIDE [Suspect]
     Active Substance: MIANSERIN HYDROCHLORIDE
     Indication: Depression
     Dosage: UNK UNK, UNKNOWN
     Route: 064
  5. OXAZEPAM [Suspect]
     Active Substance: OXAZEPAM
     Indication: Depression
     Dosage: UNK UNK, UNKNOWN
     Route: 064
  6. OXAZEPAM [Suspect]
     Active Substance: OXAZEPAM
     Indication: Depression
     Dosage: UNK UNK, UNKNOWN
     Route: 064

REACTIONS (4)
  - Foetal alcohol syndrome [Not Recovered/Not Resolved]
  - Single umbilical artery [Not Recovered/Not Resolved]
  - Heart disease congenital [Not Recovered/Not Resolved]
  - Foetal exposure during pregnancy [Unknown]

NARRATIVE: CASE EVENT DATE: 20220801
